FAERS Safety Report 10797926 (Version 1)
Quarter: 2015Q1

REPORT INFORMATION
  Report Type: Report from Study
  Country: US (occurrence: US)
  Receive Date: 20150216
  Receipt Date: 20150216
  Transmission Date: 20150721
  Serious: No
  Sender: FDA-Public Use
  Company Number: US-ABBVIE-14K-163-1232835-00

PATIENT
  Age: 42 Year
  Sex: Male

DRUGS (3)
  1. ASACOL [Concomitant]
     Active Substance: MESALAMINE
     Indication: CROHN^S DISEASE
     Dosage: THREE PILLS
  2. MULTIVITAMIN [Concomitant]
     Active Substance: VITAMINS
     Indication: PRODUCT USED FOR UNKNOWN INDICATION
     Dosage: WHEN REMEMBERS
  3. HUMIRA [Suspect]
     Active Substance: ADALIMUMAB
     Indication: CROHN^S DISEASE
     Dates: start: 201310

REACTIONS (5)
  - Renal pain [Unknown]
  - Back pain [Unknown]
  - Urinary tract infection [Unknown]
  - Abdominal discomfort [Not Recovered/Not Resolved]
  - Testicular pain [Unknown]

NARRATIVE: CASE EVENT DATE: 201404
